FAERS Safety Report 14412159 (Version 1)
Quarter: 2018Q1

REPORT INFORMATION
  Report Type: Spontaneous
  Country: US (occurrence: US)
  Receive Date: 20180117
  Receipt Date: 20180117
  Transmission Date: 20180509
  Serious: Yes (Other)
  Sender: FDA-Public Use
  Company Number: None

PATIENT
  Age: 76 Year
  Sex: Male
  Weight: 72 kg

DRUGS (7)
  1. ONDANSETRON [Concomitant]
     Active Substance: ONDANSETRON
  2. ASPIRIN. [Concomitant]
     Active Substance: ASPIRIN
  3. HYCAMTIN [Suspect]
     Active Substance: TOPOTECAN HYDROCHLORIDE
     Indication: BRONCHIAL CARCINOMA
     Route: 048
  4. PROCHLOPERAZINE [Concomitant]
  5. ALLOPURINOL. [Concomitant]
     Active Substance: ALLOPURINOL
  6. OMEPRAZOLE. [Concomitant]
     Active Substance: OMEPRAZOLE
  7. ATORVASTATIN [Concomitant]
     Active Substance: ATORVASTATIN

REACTIONS (1)
  - Disease progression [None]
